FAERS Safety Report 23393679 (Version 1)
Quarter: 2024Q1

REPORT INFORMATION
  Report Type: Spontaneous
  Country: CH (occurrence: CH)
  Receive Date: 20240111
  Receipt Date: 20240111
  Transmission Date: 20240409
  Serious: Yes (Life-Threatening, Other)
  Sender: FDA-Public Use
  Company Number: None

PATIENT
  Age: 78 Year
  Sex: Female
  Weight: 69 kg

DRUGS (10)
  1. PAXLOVID [Suspect]
     Active Substance: NIRMATRELVIR\RITONAVIR
     Indication: COVID-19
     Dosage: 3 DF, 2X/DAY (2 TABLETS OF NIRMATREVIR/ 1 TABLET OF RITONAVIR)
     Route: 048
     Dates: start: 20231206, end: 20231210
  2. EXFORGE HCT [Suspect]
     Active Substance: AMLODIPINE BESYLATE\HYDROCHLOROTHIAZIDE\VALSARTAN
     Indication: Coronary artery disease
     Dosage: 10/160/12.5 MG; 1-0-0-0
     Route: 048
     Dates: start: 2010, end: 202312
  3. EXFORGE HCT [Suspect]
     Active Substance: AMLODIPINE BESYLATE\HYDROCHLOROTHIAZIDE\VALSARTAN
     Indication: Hypertension
  4. ASS CARDIO MEPHA [Concomitant]
     Dosage: 100 MG, 1X/DAY; 1-0-0-0
  5. BISOPROLOL MEPHA [Concomitant]
     Dosage: 5 MG; 0-0-1/2-0
  6. ESOMEPRAZOLE MAGNESIUM [Concomitant]
     Active Substance: ESOMEPRAZOLE\ESOMEPRAZOLE MAGNESIUM\ESOMEPRAZOLE MAGNESIUM DIHYDRATE
     Dosage: 40 MG, 2X/DAY; 1-0-1-0
     Dates: end: 202312
  7. ESOMEPRAZOLE MAGNESIUM [Concomitant]
     Active Substance: ESOMEPRAZOLE\ESOMEPRAZOLE MAGNESIUM\ESOMEPRAZOLE MAGNESIUM DIHYDRATE
     Dosage: 40  MG, 1X/DAY
  8. ELTROXIN LF [Concomitant]
     Dosage: 50 UG, 1X/DAY; 1-0-0-0
  9. EZETIMIBE [Concomitant]
     Active Substance: EZETIMIBE
     Dosage: 10 MG, 1X/DAY;  1-0-0-0
     Dates: end: 202312
  10. ROSUVASTATIN [Concomitant]
     Active Substance: ROSUVASTATIN
     Dosage: 20 MG, 1X/DAY; 0-0-1-0

REACTIONS (4)
  - Hyponatraemia [Recovering/Resolving]
  - Hallucination, visual [Unknown]
  - Hypokalaemia [Recovering/Resolving]
  - Epilepsy [Recovering/Resolving]

NARRATIVE: CASE EVENT DATE: 20231213
